FAERS Safety Report 15289358 (Version 1)
Quarter: 2018Q3

REPORT INFORMATION
  Report Type: Spontaneous
  Country: US (occurrence: US)
  Receive Date: 20180803
  Receipt Date: 20180803
  Transmission Date: 20181010
  Serious: Yes (Disabling)
  Sender: FDA-Public Use
  Company Number: None

PATIENT
  Age: 58 Year
  Sex: Female
  Weight: 121.5 kg

DRUGS (7)
  1. BUPROPION XL [Concomitant]
     Active Substance: BUPROPION
  2. METOPROLOL SUCCINATE. [Concomitant]
     Active Substance: METOPROLOL SUCCINATE
  3. LORATADINE. [Concomitant]
     Active Substance: LORATADINE
  4. GENVOYA [Concomitant]
     Active Substance: COBICISTAT\ELVITEGRAVIR\EMTRICITABINE\TENOFOVIR ALAFENAMIDE FUMARATE
  5. CELECOXIB 400MG CAPSULES [Suspect]
     Active Substance: CELECOXIB
     Indication: ARTHRITIS
     Dosage: ?          QUANTITY:1 CAPSULE(S);?
     Route: 048
     Dates: start: 20180615, end: 20180801
  6. SERTRALINE [Concomitant]
     Active Substance: SERTRALINE HYDROCHLORIDE
  7. VALACYCLOVIR [Concomitant]
     Active Substance: VALACYCLOVIR HYDROCHLORIDE

REACTIONS (8)
  - Joint swelling [None]
  - Musculoskeletal stiffness [None]
  - Pain [None]
  - Back pain [None]
  - Arthralgia [None]
  - Musculoskeletal pain [None]
  - Product substitution issue [None]
  - Joint stiffness [None]

NARRATIVE: CASE EVENT DATE: 20180801
